FAERS Safety Report 9458004 (Version 1)
Quarter: 2013Q3

REPORT INFORMATION
  Report Type: Spontaneous
  Country: US (occurrence: DE)
  Receive Date: 20130814
  Receipt Date: 20130814
  Transmission Date: 20140515
  Serious: Yes (Hospitalization)
  Sender: FDA-Public Use
  Company Number: DE-FRI-1000047671

PATIENT
  Age: 72 Year
  Sex: Female

DRUGS (1)
  1. LINACLOTIDE [Suspect]
     Indication: IRRITABLE BOWEL SYNDROME
     Dosage: 1DF, 1/2H BEFORE BREAKFAST
     Dates: start: 201307

REACTIONS (2)
  - Constipation [Unknown]
  - Diarrhoea [Unknown]
